FAERS Safety Report 10314681 (Version 4)
Quarter: 2016Q1

REPORT INFORMATION
  Report Type: Report from Study
  Country: US (occurrence: US)
  Receive Date: 20140718
  Receipt Date: 20160129
  Transmission Date: 20160525
  Serious: Yes (Hospitalization)
  Sender: FDA-Public Use
  Company Number: US-ACTELION-A-US2014-101825

PATIENT
  Age: 6 Year
  Sex: Male

DRUGS (2)
  1. SILDENAFIL. [Concomitant]
     Active Substance: SILDENAFIL
  2. TRACLEER [Suspect]
     Active Substance: BOSENTAN
     Indication: PULMONARY ARTERIAL HYPERTENSION
     Dosage: 31.25 MG, QD
     Route: 048
     Dates: start: 20130214

REACTIONS (2)
  - Upper limb fracture [Recovered/Resolved]
  - Limb operation [Unknown]

NARRATIVE: CASE EVENT DATE: 201406
